FAERS Safety Report 9192376 (Version 1)
Quarter: 2013Q1

REPORT INFORMATION
  Report Type: Spontaneous
  Country: US (occurrence: None)
  Receive Date: 20130326
  Receipt Date: 20130326
  Transmission Date: 20140127
  Serious: Yes (Life-Threatening, Other)
  Sender: FDA-Public Use
  Company Number: None

PATIENT
  Age: 59 Year
  Sex: Male
  Weight: 90.72 kg

DRUGS (2)
  1. CYMBALTA [Suspect]
     Indication: DEPRESSION
     Route: 048
     Dates: start: 20111201, end: 20120614
  2. CYMBALTA 30 MG LILLY [Suspect]
     Indication: DEPRESSION
     Route: 048
     Dates: start: 20120615, end: 20120715

REACTIONS (15)
  - Dizziness [None]
  - Hyperhidrosis [None]
  - Dysuria [None]
  - Loss of consciousness [None]
  - Confusional state [None]
  - Pruritus [None]
  - Blood pressure increased [None]
  - Oral mucosal blistering [None]
  - Restless legs syndrome [None]
  - Myalgia [None]
  - Insomnia [None]
  - Arthralgia [None]
  - Nervousness [None]
  - Nervousness [None]
  - Chest pain [None]
